FAERS Safety Report 11915997 (Version 1)
Quarter: 2016Q1

REPORT INFORMATION
  Report Type: Spontaneous
  Country: US (occurrence: US)
  Receive Date: 20160114
  Receipt Date: 20160114
  Transmission Date: 20160526
  Serious: No
  Sender: FDA-Public Use
  Company Number: US-009507513-1512USA008559

PATIENT
  Sex: Female

DRUGS (2)
  1. NEXPLANON [Suspect]
     Active Substance: ETONOGESTREL
     Indication: CONTRACEPTION
     Dosage: 1 ROD EVERY 3 YEARS
     Route: 059
  2. NEXPLANON [Suspect]
     Active Substance: ETONOGESTREL
     Dosage: 1 ROD/EVERY THREE YEARS. LOCATION ARM
     Route: 059

REACTIONS (2)
  - Expired product administered [Unknown]
  - Device deployment issue [Unknown]
